FAERS Safety Report 19009655 (Version 1)
Quarter: 2021Q1

REPORT INFORMATION
  Report Type: Spontaneous
  Country: US (occurrence: US)
  Receive Date: 20210315
  Receipt Date: 20210315
  Transmission Date: 20210420
  Serious: No
  Sender: FDA-Public Use
  Company Number: US-PFIZER INC-2021252350

PATIENT
  Age: 56 Year
  Sex: Female

DRUGS (1)
  1. XELJANZ XR [Suspect]
     Active Substance: TOFACITINIB CITRATE
     Indication: RHEUMATOID ARTHRITIS
     Dosage: 11 MG, 1X/DAY
     Route: 048
     Dates: start: 202011

REACTIONS (7)
  - Fatigue [Unknown]
  - Illness [Unknown]
  - COVID-19 [Unknown]
  - Night sweats [Unknown]
  - Memory impairment [Not Recovered/Not Resolved]
  - Headache [Unknown]
  - Pain [Recovered/Resolved]

NARRATIVE: CASE EVENT DATE: 202011
